FAERS Safety Report 20492884 (Version 1)
Quarter: 2022Q1

REPORT INFORMATION
  Report Type: Spontaneous
  Country: US (occurrence: US)
  Receive Date: 20220219
  Receipt Date: 20220219
  Transmission Date: 20220423
  Serious: No
  Sender: FDA-Public Use
  Company Number: US-BRISTOL-MYERS SQUIBB COMPANY-BMS-2022-024617

PATIENT
  Age: 49 Year
  Sex: Female

DRUGS (3)
  1. ORENCIA [Suspect]
     Active Substance: ABATACEPT
     Indication: Rheumatoid arthritis
     Dosage: 125 MILLIGRAM, QWK
     Route: 058
     Dates: start: 20210521
  2. ORENCIA [Suspect]
     Active Substance: ABATACEPT
     Indication: Fibromyalgia
  3. ORENCIA [Suspect]
     Active Substance: ABATACEPT
     Indication: Back disorder

REACTIONS (1)
  - Pain [Unknown]
